FAERS Safety Report 26085986 (Version 2)
Quarter: 2025Q4

REPORT INFORMATION
  Report Type: Spontaneous
  Country: US (occurrence: US)
  Receive Date: 20251125
  Receipt Date: 20251223
  Transmission Date: 20260118
  Serious: No
  Sender: GILEAD
  Company Number: US-GILEAD-2025-0735332

PATIENT
  Age: 30 Year
  Sex: Female
  Weight: 88.889 kg

DRUGS (2)
  1. YEZTUGO [Suspect]
     Active Substance: LENACAPAVIR SODIUM
     Indication: Product used for unknown indication
     Dosage: 927 MG
     Route: 065
     Dates: start: 20251103
  2. YEZTUGO [Suspect]
     Active Substance: LENACAPAVIR SODIUM
     Indication: Product used for unknown indication
     Dosage: UNK TABLETS
     Route: 065

REACTIONS (1)
  - Injection site discharge [Recovered/Resolved]

NARRATIVE: CASE EVENT DATE: 20251103
